FAERS Safety Report 7755284-9 (Version None)
Quarter: 2011Q3

REPORT INFORMATION
  Report Type: 
  Country: None (occurrence: None)
  Receive Date: 20110916
  Receipt Date: 20110913
  Transmission Date: 20111222
  Serious: Yes (Hospitalization, Disabling)
  Sender: FDA-Public Use
  Company Number: GB-PFIZER INC-2011216602

PATIENT
  Age: 85 Year
  Sex: Female
  Weight: 48.4 kg

DRUGS (7)
  1. LIPITOR [Suspect]
     Indication: HYPERCHOLESTEROLAEMIA
     Dosage: 20MG, UNK
     Route: 048
     Dates: start: 20040101, end: 20110710
  2. FUSIDIC ACID [Interacting]
     Indication: OSTEOMYELITIS
     Dosage: 500 MG, 3X/DAY
     Route: 048
     Dates: start: 20110614, end: 20110710
  3. GLUCOSAMINE [Concomitant]
     Indication: ARTHRITIS
     Dosage: 1 DF, TWO TIMES PER DAY
     Route: 048
     Dates: start: 20040101
  4. ATENOLOL [Concomitant]
     Indication: HYPERTENSION
     Dosage: 50MG, UNK
     Dates: start: 20040101
  5. COD-LIVER OIL [Concomitant]
     Indication: ARTHRITIS
     Dosage: 1 DF, TWO TIMES PER DAY
     Route: 048
     Dates: start: 20040101
  6. LEVOTHYROXINE [Concomitant]
     Dosage: 50UG, UNK
     Route: 048
     Dates: start: 20040101
  7. ACETYLSALICYLIC ACID [Concomitant]
     Indication: CARDIOVASCULAR DISORDER
     Dosage: 75MG, UNK
     Route: 048
     Dates: start: 20040101

REACTIONS (6)
  - BLOOD CREATINE PHOSPHOKINASE INCREASED [None]
  - VITAMIN D DEFICIENCY [None]
  - MUSCULAR WEAKNESS [None]
  - MYOSITIS [None]
  - DRUG INTERACTION [None]
  - DIARRHOEA [None]
